FAERS Safety Report 4780111-1 (Version None)
Quarter: 2005Q3

REPORT INFORMATION
  Report Type: 
  Country: None (occurrence: None)
  Receive Date: 20050927
  Receipt Date: 20050729
  Transmission Date: 20060218
  Serious: Yes (Death)
  Sender: FDA-Public Use
  Company Number: AU-MERCK-0508AUS00025

PATIENT
  Age: 63 Year
  Sex: Female

DRUGS (2)
  1. VIOXX [Suspect]
     Route: 065
     Dates: start: 20021101, end: 20040626
  2. VIOXX [Suspect]
     Route: 065
     Dates: end: 20040701

REACTIONS (1)
  - CORONARY ARTERY ATHEROSCLEROSIS [None]
